FAERS Safety Report 14336932 (Version 1)
Quarter: 2017Q4

REPORT INFORMATION
  Report Type: Spontaneous
  Country: FR (occurrence: FR)
  Receive Date: 20171229
  Receipt Date: 20171229
  Transmission Date: 20180321
  Serious: Yes (Hospitalization, Other)
  Sender: FDA-Public Use
  Company Number: FR-BRISTOL-MYERS SQUIBB COMPANY-BMS-2017-115952

PATIENT
  Age: 84 Year
  Sex: Male
  Weight: 51 kg

DRUGS (1)
  1. HYDREA [Suspect]
     Active Substance: HYDROXYUREA
     Indication: MYELOFIBROSIS
     Dosage: 2000 MG, DAY
     Route: 048
     Dates: start: 20171108, end: 20171113

REACTIONS (4)
  - Medication error [Recovered/Resolved]
  - Product use in unapproved indication [Unknown]
  - Neutropenia [Recovering/Resolving]
  - Incorrect dose administered [Recovered/Resolved]

NARRATIVE: CASE EVENT DATE: 20171113
